FAERS Safety Report 10695881 (Version 1)
Quarter: 2015Q1

REPORT INFORMATION
  Report Type: Spontaneous
  Country: US (occurrence: None)
  Receive Date: 20150106
  Receipt Date: 20150106
  Transmission Date: 20150721
  Serious: Yes (Hospitalization)
  Sender: FDA-Public Use
  Company Number: None

PATIENT
  Age: 68 Year
  Sex: Male
  Weight: 66.4 kg

DRUGS (2)
  1. WARFARIN [Suspect]
     Active Substance: WARFARIN
     Indication: MITRAL VALVE REPLACEMENT
     Dosage: 5 MG, OTHER, PO?
     Route: 048
     Dates: start: 20141021, end: 20141117
  2. WARFARIN [Suspect]
     Active Substance: WARFARIN
     Indication: ATRIAL FIBRILLATION
     Dosage: 5 MG, OTHER, PO?
     Route: 048
     Dates: start: 20141021, end: 20141117

REACTIONS (3)
  - Anaemia [None]
  - Internal haemorrhage [None]
  - Contusion [None]

NARRATIVE: CASE EVENT DATE: 20141117
